FAERS Safety Report 5423297-8 (Version None)
Quarter: 2007Q3

REPORT INFORMATION
  Report Type: 
  Country: None (occurrence: None)
  Receive Date: 20070823
  Receipt Date: 20070817
  Transmission Date: 20080115
  Serious: Yes (Other)
  Sender: FDA-Public Use
  Company Number: PHNU2007DE02894

PATIENT
  Age: 82 Year
  Sex: Male

DRUGS (3)
  1. TRILEPTAL [Suspect]
     Indication: CEREBRAL VENOUS THROMBOSIS
     Dosage: 1200 MG/D
     Route: 048
     Dates: start: 20070301, end: 20070601
  2. TRILEPTAL [Suspect]
     Dosage: GRADUAL DOSE REDUCTION TO 150 MG/D
     Route: 048
     Dates: start: 20070601, end: 20070814
  3. TRILEPTAL [Suspect]
     Dosage: 150 MG/D
     Route: 048
     Dates: start: 20070817

REACTIONS (5)
  - AGGRESSION [None]
  - CONFUSIONAL STATE [None]
  - DIARRHOEA [None]
  - DRUG WITHDRAWAL SYNDROME [None]
  - RASH [None]
